FAERS Safety Report 8578277-0 (Version None)
Quarter: 2012Q3

REPORT INFORMATION
  Report Type: 
  Country: None (occurrence: None)
  Receive Date: 20120726
  Receipt Date: 20120711
  Transmission Date: 20120928
  Serious: Yes (Death, Other)
  Sender: FDA-Public Use
  Company Number: TPA2012A00652

PATIENT
  Age: 76 Year
  Sex: Male
  Weight: 99.7913 kg

DRUGS (8)
  1. STARLIX [Concomitant]
  2. GLUCOTROL [Concomitant]
  3. ACTOS [Suspect]
     Indication: TYPE 2 DIABETES MELLITUS
     Dates: start: 20021001, end: 20030101
  4. ACTOS [Suspect]
     Indication: TYPE 2 DIABETES MELLITUS
     Dates: start: 20030201, end: 20090901
  5. GLIPIZIDE [Concomitant]
  6. METFFORMIN HYDROCHLORIDE [Concomitant]
  7. GLUCOPHAGE [Concomitant]
  8. LEVEMIR [Concomitant]

REACTIONS (1)
  - BLADDER CANCER [None]
